FAERS Safety Report 21889282 (Version 1)
Quarter: 2023Q1

REPORT INFORMATION
  Report Type: Spontaneous
  Country: US (occurrence: US)
  Receive Date: 20230120
  Receipt Date: 20230120
  Transmission Date: 20230417
  Serious: Yes (Death, Hospitalization, Other)
  Sender: FDA-Public Use
  Company Number: US-APOTEX-2023AP002267

PATIENT
  Age: 16 Month
  Sex: Male

DRUGS (1)
  1. FENTANYL [Suspect]
     Active Substance: FENTANYL
     Indication: Product used for unknown indication
     Dosage: UNK
     Route: 048

REACTIONS (13)
  - Toxicity to various agents [Fatal]
  - Adulterated product [Fatal]
  - Hypotension [Fatal]
  - Tachycardia [Fatal]
  - Cardiac arrest [Fatal]
  - Urine output decreased [Fatal]
  - Unresponsive to stimuli [Fatal]
  - Cardio-respiratory arrest [Fatal]
  - Cyanosis [Fatal]
  - Brain herniation [Fatal]
  - Acidosis [Fatal]
  - Prescription drug used without a prescription [Unknown]
  - Accidental exposure to product [Fatal]

NARRATIVE: CASE EVENT DATE: 20210101
